FAERS Safety Report 15713899 (Version 1)
Quarter: 2018Q4

REPORT INFORMATION
  Report Type: Spontaneous
  Country: US (occurrence: US)
  Receive Date: 20181212
  Receipt Date: 20181212
  Transmission Date: 20190205
  Serious: Yes (Disabling)
  Sender: FDA-Public Use
  Company Number: None

PATIENT
  Age: 42 Year
  Sex: Female
  Weight: 58.5 kg

DRUGS (11)
  1. CIPROFLOXACIN HCL [Suspect]
     Active Substance: CIPROFLOXACIN HYDROCHLORIDE
     Indication: URINARY TRACT INFECTION
     Dosage: ?          QUANTITY:1 TABLET(S);?
     Route: 048
     Dates: start: 20181130, end: 20181201
  2. VITAMIN C [Concomitant]
     Active Substance: ASCORBIC ACID
  3. B6 [Concomitant]
     Active Substance: PYRIDOXINE HYDROCHLORIDE
  4. VITAMIN E [Concomitant]
     Active Substance: .ALPHA.-TOCOPHEROL
  5. PRIMROSE OIL [Concomitant]
  6. SUMATRIPTAN. [Concomitant]
     Active Substance: SUMATRIPTAN
  7. MULTIVITAMIN [Concomitant]
     Active Substance: VITAMINS
  8. FLAXSEED [Concomitant]
     Active Substance: FLAX SEED
  9. SALMON OIL [Concomitant]
     Active Substance: FISH OIL
  10. CALCIUM + VITAMIN D [Concomitant]
     Active Substance: CALCIUM\VITAMIN D
  11. IBUPROFEN. [Concomitant]
     Active Substance: IBUPROFEN

REACTIONS (4)
  - Tendon pain [None]
  - Paraesthesia [None]
  - Pain in extremity [None]
  - Musculoskeletal pain [None]

NARRATIVE: CASE EVENT DATE: 20181201
